FAERS Safety Report 4836384-X (Version None)
Quarter: 2005Q4

REPORT INFORMATION
  Report Type: 
  Country: None (occurrence: None)
  Receive Date: 20051123
  Receipt Date: 20051005
  Transmission Date: 20060501
  Serious: Yes (Other)
  Sender: FDA-Public Use
  Company Number: PHEH2005US11121

PATIENT
  Age: 58 Year
  Sex: Female

DRUGS (2)
  1. LOTREL [Suspect]
     Indication: HYPERTENSION
     Dosage: 5/20MG, QD
     Route: 048
     Dates: start: 20050927, end: 20051003
  2. XANAX [Suspect]
     Indication: PANIC DISORDER

REACTIONS (8)
  - ABDOMINAL PAIN [None]
  - CRYING [None]
  - DEPRESSION [None]
  - DIARRHOEA [None]
  - DIURETIC EFFECT [None]
  - DRUG INTERACTION [None]
  - SUICIDAL IDEATION [None]
  - TREMOR [None]
